FAERS Safety Report 8190685-9 (Version None)
Quarter: 2012Q1

REPORT INFORMATION
  Report Type: 
  Country: None (occurrence: None)
  Receive Date: 20120307
  Receipt Date: 20120227
  Transmission Date: 20120608
  Serious: Yes (Hospitalization, Other)
  Sender: FDA-Public Use
  Company Number: US-TEVA-318454USA

PATIENT
  Sex: Female
  Weight: 126.67 kg

DRUGS (14)
  1. NUVIGIL [Suspect]
     Indication: SOMNOLENCE
     Route: 048
     Dates: start: 20110501, end: 20110701
  2. TRAZODONE HCL [Concomitant]
     Dates: end: 20110501
  3. LATUDA [Concomitant]
     Dates: end: 20110701
  4. SULINDAC [Concomitant]
     Indication: PAIN
     Dosage: 2 TIMES A DAY
     Route: 048
  5. CYMBALTA [Concomitant]
     Route: 048
  6. CYMBALTA [Concomitant]
  7. MAGNESIUM [Concomitant]
  8. AVELASTINE [Concomitant]
     Indication: HYPERSENSITIVITY
     Route: 045
  9. COMBIVENT [Concomitant]
  10. NUVIGIL [Suspect]
     Indication: DEPRESSION
     Route: 048
     Dates: start: 20110401, end: 20110501
  11. NALTREXONE HYDROCHLORIDE [Concomitant]
     Route: 048
     Dates: end: 20110501
  12. CAMPRAL [Concomitant]
     Dosage: 2 TABLETS THREE TIMES A DAY
     Route: 048
     Dates: end: 20110501
  13. VITAMIN D [Concomitant]
     Dosage: 50,000 UNITS - 2XS A WEEK
  14. METFORMIN [Concomitant]
     Dosage: 2 X DAY

REACTIONS (7)
  - ACTIVITIES OF DAILY LIVING IMPAIRED [None]
  - MENTAL DISORDER [None]
  - INCORRECT ROUTE OF DRUG ADMINISTRATION [None]
  - AGGRESSION [None]
  - EMOTIONAL DISORDER [None]
  - SOMNOLENCE [None]
  - AGITATION [None]
